FAERS Safety Report 8212518-4 (Version None)
Quarter: 2012Q1

REPORT INFORMATION
  Report Type: 
  Country: None (occurrence: None)
  Receive Date: 20120315
  Receipt Date: 20120307
  Transmission Date: 20120608
  Serious: Yes (Hospitalization)
  Sender: FDA-Public Use
  Company Number: SE-GLAXOSMITHKLINE-B0788215A

PATIENT
  Sex: Male

DRUGS (2)
  1. MALARONE [Suspect]
     Indication: MALARIA PROPHYLAXIS
     Route: 048
     Dates: start: 20120101, end: 20120101
  2. ASPIRIN [Concomitant]

REACTIONS (6)
  - THROMBOCYTOPENIA [None]
  - NAUSEA [None]
  - VOMITING [None]
  - PRURITUS [None]
  - TRANSAMINASES INCREASED [None]
  - DIARRHOEA [None]
